FAERS Safety Report 10746717 (Version 10)
Quarter: 2020Q1

REPORT INFORMATION
  Report Type: Spontaneous
  Country: FR (occurrence: FR)
  Receive Date: 20150128
  Receipt Date: 20200121
  Transmission Date: 20200409
  Serious: Yes (Hospitalization, Other)
  Sender: FDA-Public Use
  Company Number: FR-009507513-1312FRA002185

PATIENT
  Sex: Female
  Weight: 60 kg

DRUGS (1)
  1. NEXPLANON [Suspect]
     Active Substance: ETONOGESTREL
     Indication: CONTRACEPTION
     Dosage: 1 DOSAGE FORM
     Route: 059
     Dates: start: 20130314, end: 20150218

REACTIONS (9)
  - Device embolisation [Recovered/Resolved]
  - Abnormal behaviour [Recovered/Resolved]
  - Complication associated with device [Recovered/Resolved]
  - Vascular access placement [Recovered/Resolved]
  - Hormone level abnormal [Unknown]
  - Migraine [Unknown]
  - Metrorrhagia [Recovered/Resolved]
  - Pruritus genital [Unknown]
  - Complication of device removal [Recovered/Resolved]

NARRATIVE: CASE EVENT DATE: 201303
